FAERS Safety Report 19577487 (Version 2)
Quarter: 2021Q3

REPORT INFORMATION
  Report Type: Report from Study
  Country: US (occurrence: US)
  Receive Date: 20210719
  Receipt Date: 20210820
  Transmission Date: 20211014
  Serious: Yes (Hospitalization)
  Sender: FDA-Public Use
  Company Number: US-ROCHE-2870216

PATIENT
  Age: 80 Year
  Sex: Female
  Weight: 71.7 kg

DRUGS (14)
  1. OBINUTUZUMAB. [Suspect]
     Active Substance: OBINUTUZUMAB
     Indication: CHRONIC LYMPHOCYTIC LEUKAEMIA
     Dosage: ON C1D1,
     Route: 042
     Dates: start: 20210517
  2. AMIODARONE [Concomitant]
     Active Substance: AMIODARONE
  3. FUROSEMIDE. [Concomitant]
     Active Substance: FUROSEMIDE
  4. OBINUTUZUMAB. [Suspect]
     Active Substance: OBINUTUZUMAB
     Dosage: ON C1D8 + C1D15, C2?6D1, LAST ADMINISTERED DATE: 01/JUN/2021, TOTAL DOSE ADMINISTERED: 3000 MG
     Route: 042
  5. AMLODIPINE [Concomitant]
     Active Substance: AMLODIPINE BESYLATE
  6. APIXABAN [Concomitant]
     Active Substance: APIXABAN
  7. EZETIMIBE. [Concomitant]
     Active Substance: EZETIMIBE
  8. METFORMIN [Concomitant]
     Active Substance: METFORMIN HYDROCHLORIDE
  9. IBRUTINIB [Suspect]
     Active Substance: IBRUTINIB
     Indication: CHRONIC LYMPHOCYTIC LEUKAEMIA
     Dosage: FOR 15 CYCLES,  LAST ADMINISTERED DATE: 02/JUN/2021, TOTAL DOSE ADMINISTERED: 6720 MG
     Route: 048
     Dates: start: 20210517, end: 20210602
  10. BISOPROLOL [Concomitant]
     Active Substance: BISOPROLOL
  11. OBINUTUZUMAB. [Suspect]
     Active Substance: OBINUTUZUMAB
     Dosage: ON C1D2
     Route: 042
  12. LEVETIRACETAM. [Concomitant]
     Active Substance: LEVETIRACETAM
  13. ASPIRIN. [Concomitant]
     Active Substance: ASPIRIN
  14. OLMESARTAN [Concomitant]
     Active Substance: OLMESARTAN

REACTIONS (5)
  - Dyspnoea [Not Recovered/Not Resolved]
  - Cardiac failure [Recovered/Resolved]
  - Respiratory failure [Recovered/Resolved]
  - Acidosis [Recovered/Resolved]
  - Pneumonia [Recovered/Resolved]

NARRATIVE: CASE EVENT DATE: 20210603
